FAERS Safety Report 4775609-6 (Version None)
Quarter: 2005Q3

REPORT INFORMATION
  Report Type: 
  Country: None (occurrence: None)
  Receive Date: 20050922
  Receipt Date: 20050907
  Transmission Date: 20060218
  Serious: Yes (Other)
  Sender: FDA-Public Use
  Company Number: SEWYE961308SEP05

PATIENT
  Age: 27 Year
  Sex: Male

DRUGS (2)
  1. ENBREL [Suspect]
     Indication: POLYARTHRITIS
  2. METHOTREXATE [Suspect]
     Dosage: DOSE REGIMEN UNKNOWN
     Dates: end: 20041101

REACTIONS (1)
  - INFERTILITY MALE [None]
